FAERS Safety Report 5332662-9 (Version None)
Quarter: 2007Q2

REPORT INFORMATION
  Report Type: 
  Country: None (occurrence: None)
  Receive Date: 20070523
  Receipt Date: 20070515
  Transmission Date: 20071010
  Serious: Yes (Other)
  Sender: FDA-Public Use
  Company Number: US-PFIZER INC-2006129671

PATIENT
  Sex: Female

DRUGS (3)
  1. CELECOXIB [Suspect]
     Indication: BACK PAIN
     Dosage: DAILY DOSE:200MG
     Route: 048
     Dates: start: 20000801, end: 20040601
  2. BEXTRA [Suspect]
     Indication: BACK PAIN
     Route: 048
     Dates: start: 20030301, end: 20041001
  3. VIOXX [Suspect]
     Dates: start: 20010301, end: 20040401

REACTIONS (1)
  - CEREBROVASCULAR ACCIDENT [None]
